FAERS Safety Report 25592138 (Version 2)
Quarter: 2025Q3

REPORT INFORMATION
  Report Type: Report from Study
  Country: CA (occurrence: CA)
  Receive Date: 20250722
  Receipt Date: 20250823
  Transmission Date: 20251020
  Serious: No
  Sender: ABBVIE
  Company Number: CA-ABBVIE-6377899

PATIENT
  Sex: Female

DRUGS (1)
  1. RINVOQ [Suspect]
     Active Substance: UPADACITINIB
     Indication: Rheumatoid arthritis
     Dosage: PROLONGED RELEASED TABLET
     Route: 048

REACTIONS (4)
  - Pain in extremity [Not Recovered/Not Resolved]
  - Dyspnoea exertional [Not Recovered/Not Resolved]
  - Joint effusion [Unknown]
  - Arthralgia [Unknown]
